FAERS Safety Report 19206853 (Version 2)
Quarter: 2021Q2

REPORT INFORMATION
  Report Type: Spontaneous
  Country: DE (occurrence: DE)
  Receive Date: 20210430
  Receipt Date: 20210623
  Transmission Date: 20210717
  Serious: Yes (Death, Hospitalization)
  Sender: FDA-Public Use
  Company Number: DE-EXELIXIS-CABO-21038831

PATIENT
  Age: 64 Year
  Sex: Female
  Weight: 74.5 kg

DRUGS (5)
  1. MACROGOL [Concomitant]
     Active Substance: POLYETHYLENE GLYCOLS
     Indication: CONSTIPATION
  2. TORASEMID [Concomitant]
     Active Substance: TORSEMIDE
     Indication: OEDEMA PERIPHERAL
  3. CABOMETYX [Suspect]
     Active Substance: CABOZANTINIB S-MALATE
     Indication: HEPATOCELLULAR CARCINOMA
     Dosage: 40 MG, QD
     Route: 048
     Dates: start: 20200910
  4. TORASEMID [Concomitant]
     Active Substance: TORSEMIDE
     Indication: ASCITES
  5. CABOMETYX [Suspect]
     Active Substance: CABOZANTINIB S-MALATE
     Dosage: 60 MG, QD
     Route: 048

REACTIONS (5)
  - Renal failure [Unknown]
  - Malignant neoplasm progression [Unknown]
  - Death [Fatal]
  - Abdominal pain upper [Unknown]
  - Hepatic failure [Unknown]

NARRATIVE: CASE EVENT DATE: 20210323
